FAERS Safety Report 9896729 (Version 1)
Quarter: 2014Q1

REPORT INFORMATION
  Report Type: Spontaneous
  Country: US (occurrence: US)
  Receive Date: 20140213
  Receipt Date: 20140213
  Transmission Date: 20141002
  Serious: No
  Sender: FDA-Public Use
  Company Number: US-BRISTOL-MYERS SQUIBB COMPANY-19174317

PATIENT
  Age: 60 Year
  Sex: Female
  Weight: 77.1 kg

DRUGS (5)
  1. ORENCIA [Suspect]
     Indication: RHEUMATOID ARTHRITIS
     Route: 042
  2. HYDROCHLOROTHIAZIDE [Concomitant]
     Dosage: 1 DF: 12.5 UNITS NOS
  3. PLAQUENIL [Concomitant]
  4. FISH OIL [Concomitant]
  5. VITAMINS [Concomitant]

REACTIONS (1)
  - Drug ineffective [Unknown]
